FAERS Safety Report 12894309 (Version 2)
Quarter: 2016Q4

REPORT INFORMATION
  Report Type: Spontaneous
  Country: JP (occurrence: JP)
  Receive Date: 20161028
  Receipt Date: 20161213
  Transmission Date: 20170207
  Serious: Yes (Other)
  Sender: FDA-Public Use
  Company Number: JP-ELI_LILLY_AND_COMPANY-JP201610007483

PATIENT
  Age: 72 Year
  Sex: Male
  Weight: 51.2 kg

DRUGS (7)
  1. CYRAMZA [Suspect]
     Active Substance: RAMUCIRUMAB
     Dosage: 6 MG/KG, UNK
     Route: 042
     Dates: start: 20160916, end: 20160916
  2. CYRAMZA [Suspect]
     Active Substance: RAMUCIRUMAB
     Indication: GASTRIC CANCER RECURRENT
     Dosage: 400 MG, OTHER
     Route: 042
     Dates: start: 20160513, end: 2016
  3. PURSENIDE [Concomitant]
     Active Substance: SENNOSIDES A AND B
     Dosage: 24 MG, QD
     Route: 048
  4. PACLITAXEL. [Concomitant]
     Active Substance: PACLITAXEL
     Indication: GASTRIC CANCER RECURRENT
     Dosage: 120 MG, OTHER
     Route: 042
     Dates: start: 20160513, end: 20160916
  5. MAGNESIUM OXIDE. [Concomitant]
     Active Substance: MAGNESIUM OXIDE
     Dosage: 330 MG, TID
     Route: 048
  6. NIFEDIPINE L [Concomitant]
     Indication: HYPERTENSION
     Dosage: 20 MG, BID
     Route: 048
  7. JUZENTAIHOTO                       /07985601/ [Concomitant]
     Active Substance: HERBALS
     Dosage: 3.75 G, BID
     Route: 048
     Dates: start: 20160527

REACTIONS (3)
  - Oedema [Recovered/Resolved]
  - Proteinuria [Recovered/Resolved]
  - Nephrotic syndrome [Recovered/Resolved]

NARRATIVE: CASE EVENT DATE: 2016
